FAERS Safety Report 7364564-0 (Version None)
Quarter: 2011Q1

REPORT INFORMATION
  Report Type: 
  Country: None (occurrence: None)
  Receive Date: 20110321
  Receipt Date: 20100917
  Transmission Date: 20110831
  Serious: Yes (Hospitalization)
  Sender: FDA-Public Use
  Company Number: JP-ASTRAZENECA-2011SE14367

PATIENT
  Age: 13262 Day
  Sex: Male

DRUGS (5)
  1. MEROPENEM [Suspect]
     Route: 042
     Dates: start: 20100914, end: 20100914
  2. MEROPENEM [Suspect]
     Route: 042
     Dates: start: 20100915, end: 20100915
  3. MEROPENEM [Suspect]
     Route: 042
     Dates: start: 20100910, end: 20100910
  4. MEROPENEM [Suspect]
     Route: 042
     Dates: start: 20100913, end: 20100913
  5. MEROPENEM [Suspect]
     Route: 042
     Dates: start: 20100916, end: 20100916

REACTIONS (2)
  - VOMITING [None]
  - GASTROOESOPHAGEAL REFLUX DISEASE [None]
